FAERS Safety Report 20062136 (Version 1)
Quarter: 2021Q4

REPORT INFORMATION
  Report Type: Spontaneous
  Country: FR (occurrence: FR)
  Receive Date: 20211112
  Receipt Date: 20211112
  Transmission Date: 20220303
  Serious: Yes (Disabling, Other)
  Sender: FDA-Public Use
  Company Number: FR-ABBVIE-21K-056-4157554-00

PATIENT
  Sex: Male

DRUGS (11)
  1. DEPAKOTE ER [Suspect]
     Active Substance: DIVALPROEX SODIUM
     Indication: Bipolar disorder
     Route: 065
     Dates: start: 200301, end: 201210
  2. PRAMIPEXOLE [Suspect]
     Active Substance: PRAMIPEXOLE
     Indication: Restless legs syndrome
     Route: 065
     Dates: start: 200811
  3. PRAMIPEXOLE [Suspect]
     Active Substance: PRAMIPEXOLE
     Route: 065
     Dates: start: 200909, end: 200911
  4. PRAMIPEXOLE [Suspect]
     Active Substance: PRAMIPEXOLE
     Route: 065
     Dates: start: 200911, end: 200912
  5. PRAMIPEXOLE [Suspect]
     Active Substance: PRAMIPEXOLE
     Route: 065
     Dates: start: 200912, end: 201109
  6. PRAMIPEXOLE [Suspect]
     Active Substance: PRAMIPEXOLE
     Route: 065
  7. EFFEXOR [Suspect]
     Active Substance: VENLAFAXINE HYDROCHLORIDE
     Indication: Product used for unknown indication
     Route: 065
     Dates: start: 2011
  8. ROPINIROLE [Suspect]
     Active Substance: ROPINIROLE
     Indication: Product used for unknown indication
     Route: 065
     Dates: start: 200605, end: 200811
  9. OXAZEPAM [Suspect]
     Active Substance: OXAZEPAM
     Indication: Product used for unknown indication
     Route: 065
     Dates: start: 2011, end: 201304
  10. PIRIBEDIL [Suspect]
     Active Substance: PIRIBEDIL
     Indication: Restless legs syndrome
     Route: 065
  11. REQUIP [Suspect]
     Active Substance: ROPINIROLE HYDROCHLORIDE
     Indication: Restless legs syndrome
     Route: 065
     Dates: start: 200505, end: 200606

REACTIONS (25)
  - Dementia Alzheimer^s type [Unknown]
  - Bipolar disorder [Recovered/Resolved]
  - General physical health deterioration [Not Recovered/Not Resolved]
  - Peripheral sensory neuropathy [Not Recovered/Not Resolved]
  - Mental impairment [Unknown]
  - Bipolar disorder [Not Recovered/Not Resolved]
  - Dementia [Unknown]
  - Emotional disorder [Not Recovered/Not Resolved]
  - Cognitive disorder [Not Recovered/Not Resolved]
  - Procrastination [Not Recovered/Not Resolved]
  - Apathy [Not Recovered/Not Resolved]
  - Confusional state [Unknown]
  - Impaired work ability [Unknown]
  - Poor quality sleep [Unknown]
  - Disorientation [Unknown]
  - Psychiatric symptom [Unknown]
  - Hepatic steatosis [Unknown]
  - Restless legs syndrome [Recovered/Resolved]
  - Abnormal behaviour [Unknown]
  - Mental disorder [Unknown]
  - Condition aggravated [Recovered/Resolved]
  - Libido increased [Unknown]
  - Fatigue [Unknown]
  - Overdose [Unknown]
  - Therapeutic product effect incomplete [Unknown]

NARRATIVE: CASE EVENT DATE: 20090901
